FAERS Safety Report 21624985 (Version 1)
Quarter: 2022Q4

REPORT INFORMATION
  Report Type: Spontaneous
  Country: RO (occurrence: RO)
  Receive Date: 20221122
  Receipt Date: 20221122
  Transmission Date: 20230113
  Serious: Yes (Other)
  Sender: FDA-Public Use
  Company Number: RO-MLMSERVICE-20210826-3070559-1

PATIENT
  Age: 57 Year
  Sex: Female

DRUGS (6)
  1. IBANDRONIC ACID [Suspect]
     Active Substance: IBANDRONIC ACID
     Indication: Invasive ductal breast carcinoma
     Dosage: 12 MILLIGRAM (2 CYCLE) (EVERY 3 WEEKS)
     Route: 065
     Dates: start: 2019
  2. PACLITAXEL [Suspect]
     Active Substance: PACLITAXEL
     Indication: Invasive ductal breast carcinoma
     Dosage: 350 MILLIGRAM/SQ. METER (2 CYCLE) PACLITAXEL 175 MILLIGRAMS (MG)/M2 EVERY 3 WEEKS
     Route: 065
     Dates: start: 2019
  3. ALPRAZOLAM [Concomitant]
     Active Substance: ALPRAZOLAM
     Indication: Depression
     Dosage: 0.5 MILLIGRAM, 3 TIMES A DAY
     Route: 065
     Dates: start: 2017
  4. CITALOPRAM [Concomitant]
     Active Substance: CITALOPRAM HYDROBROMIDE
     Indication: Depression
     Dosage: 20 MILLIGRAM, ONCE A DAY
     Route: 065
     Dates: start: 2017
  5. ANASTROZOLE [Concomitant]
     Active Substance: ANASTROZOLE
     Indication: Invasive ductal breast carcinoma
     Dosage: 1 MILLIGRAM, ONCE A DAY
     Route: 065
     Dates: start: 201509
  6. ZOPICLONE [Concomitant]
     Active Substance: ZOPICLONE
     Indication: Insomnia
     Dosage: 7.5 MILLIGRAM, ONCE A DAY
     Route: 065

REACTIONS (5)
  - Vomiting [Unknown]
  - Febrile neutropenia [Unknown]
  - Neuropathy peripheral [Unknown]
  - Drug intolerance [Unknown]
  - Toxicity to various agents [Unknown]

NARRATIVE: CASE EVENT DATE: 20190101
